FAERS Safety Report 5390260-5 (Version None)
Quarter: 2007Q3

REPORT INFORMATION
  Report Type: 
  Country: None (occurrence: None)
  Receive Date: 20070718
  Receipt Date: 20070710
  Transmission Date: 20080115
  Serious: Yes (Hospitalization)
  Sender: FDA-Public Use
  Company Number: CM-MERCK-0707USA01847

PATIENT
  Age: 30 Year
  Sex: Male
  Weight: 52 kg

DRUGS (1)
  1. MECTIZAN [Suspect]
     Indication: PROPHYLAXIS
     Route: 048
     Dates: start: 20070406, end: 20070406

REACTIONS (6)
  - ABDOMINAL PAIN UPPER [None]
  - ANOREXIA [None]
  - ARTHRALGIA [None]
  - ASTHENIA [None]
  - CHILLS [None]
  - HEADACHE [None]
